FAERS Safety Report 6171723-1 (Version None)
Quarter: 2009Q2

REPORT INFORMATION
  Report Type: 
  Country: None (occurrence: None)
  Receive Date: 20090429
  Receipt Date: 20090423
  Transmission Date: 20091009
  Serious: Yes (Hospitalization)
  Sender: FDA-Public Use
  Company Number: B0571365A

PATIENT
  Sex: Male

DRUGS (7)
  1. SERETIDE DISKUS [Suspect]
     Indication: CHRONIC OBSTRUCTIVE PULMONARY DISEASE
     Dosage: 2PUFF PER DAY
     Route: 055
  2. ENALAPRIL [Suspect]
     Dosage: 2.5MG IN THE MORNING
     Route: 048
     Dates: end: 20090320
  3. FUROSEMIDE [Suspect]
     Dosage: 40MG PER DAY
     Route: 048
  4. AMIODARONE [Suspect]
     Indication: ATRIAL FIBRILLATION
     Dosage: 200MG FIVE TIMES PER WEEK
     Route: 048
  5. LEVOTHYROXINE SODIUM [Suspect]
     Dosage: 25MCG PER DAY
     Route: 048
  6. ATARAX [Suspect]
     Indication: ANXIETY
     Dosage: 25MG PER DAY
     Route: 048
  7. PREVISCAN [Suspect]
     Indication: ATRIAL FIBRILLATION
     Dosage: 5MG PER DAY
     Route: 048

REACTIONS (7)
  - ERYSIPELAS [None]
  - ERYTHEMA [None]
  - HAEMATOMA INFECTION [None]
  - OEDEMA PERIPHERAL [None]
  - PRURIGO [None]
  - SKIN LESION [None]
  - SKIN REACTION [None]
